FAERS Safety Report 7034560 (Version 3)
Quarter: 2013Q4

REPORT INFORMATION
  Report Type: Spontaneous
  Country: US (occurrence: US)
  Receive Date: 20090626
  Receipt Date: 20131111
  Transmission Date: 20140711
  Serious: Yes (Life-Threatening, Hospitalization)
  Sender: FDA-Public Use
  Company Number: US-PFIZER INC-2008047963

PATIENT
  Age: 56 Year
  Sex: Female
  Weight: 78.01 kg

DRUGS (3)
  1. SUTENT [Suspect]
     Indication: RENAL CELL CARCINOMA
     Dosage: 50 MG, UNK
     Route: 048
     Dates: start: 200802, end: 200808
  2. GEMFIBROZIL [Suspect]
     Dosage: UNK
     Dates: start: 200801, end: 200803
  3. NIACIN [Suspect]
     Dosage: UNK
     Dates: end: 200803

REACTIONS (5)
  - Jaundice [Recovered/Resolved]
  - Fatigue [Recovered/Resolved]
  - Rash [Recovered/Resolved]
  - Sinus headache [Recovered/Resolved]
  - Sinus congestion [Recovered/Resolved]
